FAERS Safety Report 7303782-4 (Version None)
Quarter: 2011Q1

REPORT INFORMATION
  Report Type: 
  Country: None (occurrence: None)
  Receive Date: 20110221
  Receipt Date: 20110210
  Transmission Date: 20110831
  Serious: Yes (Hospitalization, Other)
  Sender: FDA-Public Use
  Company Number: JP-ROCHE-757207

PATIENT
  Sex: Male
  Weight: 70 kg

DRUGS (14)
  1. CELECOXIB [Suspect]
     Indication: RHEUMATOID ARTHRITIS
     Route: 048
  2. AZULFIDINE [Concomitant]
     Route: 048
  3. CARBOPLATIN [Concomitant]
     Route: 041
     Dates: start: 20100728, end: 20100728
  4. AMLODIPINE [Concomitant]
     Route: 048
  5. AVASTIN [Suspect]
     Route: 041
     Dates: start: 20100728, end: 20100728
  6. OLMETEC [Concomitant]
     Route: 048
  7. AVASTIN [Suspect]
     Indication: LUNG ADENOCARCINOMA
     Route: 041
     Dates: start: 20100519, end: 20100630
  8. ASTOMIN [Concomitant]
     Route: 048
  9. PROTECADIN [Concomitant]
     Route: 048
  10. CARBOPLATIN [Concomitant]
     Indication: LUNG ADENOCARCINOMA
     Route: 041
     Dates: start: 20100519, end: 20100728
  11. PACLITAXEL [Concomitant]
     Route: 041
     Dates: start: 20100728, end: 20100728
  12. PACLITAXEL [Concomitant]
     Indication: LUNG ADENOCARCINOMA
     Route: 041
     Dates: start: 20100519, end: 20100630
  13. GASLON N [Concomitant]
     Route: 048
  14. ZYLORIC [Concomitant]
     Route: 048

REACTIONS (8)
  - MALAISE [None]
  - MELAENA [None]
  - EPISTAXIS [None]
  - C-REACTIVE PROTEIN INCREASED [None]
  - RHINITIS ALLERGIC [None]
  - PYREXIA [None]
  - RECTAL ULCER [None]
  - NEUTROPHIL COUNT DECREASED [None]
